FAERS Safety Report 5162974-3 (Version None)
Quarter: 2006Q4

REPORT INFORMATION
  Report Type: 
  Country: None (occurrence: None)
  Receive Date: 20061201
  Receipt Date: 20061120
  Transmission Date: 20070319
  Serious: Yes (Hospitalization)
  Sender: FDA-Public Use
  Company Number: 2006GB02113

PATIENT
  Age: 80 Year
  Sex: Male

DRUGS (10)
  1. FELODIPINE [Suspect]
     Indication: HYPERTENSION
     Route: 048
     Dates: end: 20061026
  2. BENDROFLUMETHIAZIDE [Suspect]
     Indication: HYPERTENSION
     Route: 048
     Dates: end: 20061026
  3. ASPIRIN [Concomitant]
  4. ESCITALOPRAM OXALATE [Concomitant]
     Indication: DEPRESSION
  5. FELBINAC [Concomitant]
  6. GAVISCON [Concomitant]
     Route: 048
  7. GAVISCON [Concomitant]
  8. LEVOTHYROXINE SODIUM [Concomitant]
  9. ACETAMINOPHEN [Concomitant]
     Indication: PAIN
  10. SIMVASTATIN [Concomitant]
     Indication: DYSLIPIDAEMIA

REACTIONS (3)
  - HYPOKALAEMIA [None]
  - ORTHOSTATIC HYPOTENSION [None]
  - RADIUS FRACTURE [None]
